FAERS Safety Report 13896288 (Version 1)
Quarter: 2017Q3

REPORT INFORMATION
  Report Type: Spontaneous
  Country: US (occurrence: US)
  Receive Date: 20170823
  Receipt Date: 20170823
  Transmission Date: 20171127
  Serious: No
  Sender: FDA-Public Use
  Company Number: US-SUN PHARMACEUTICAL INDUSTRIES LTD-2016SUN00413

PATIENT
  Age: 38 Year
  Sex: Female
  Weight: 136.5 kg

DRUGS (7)
  1. ZYRTEC [Concomitant]
     Active Substance: CETIRIZINE HYDROCHLORIDE
  2. METOPROLOL SUCCINATE ER [Concomitant]
     Active Substance: METOPROLOL SUCCINATE
  3. SODIUM PERTECHNETATE TC 99M [Suspect]
     Active Substance: TECHNETIUM TC-99M SODIUM PERTECHNETATE
     Indication: MULTIPLE GATED ACQUISITION SCAN
     Dosage: 25 MCI, (TC04)
     Route: 042
     Dates: start: 20160810, end: 20160810
  4. DIGOXIN. [Concomitant]
     Active Substance: DIGOXIN
  5. ALDACTONE [Concomitant]
     Active Substance: SPIRONOLACTONE
  6. DIOVAN [Concomitant]
     Active Substance: VALSARTAN
  7. TECHNETIUM TC-99M PYROPHOSPHATE KIT [Suspect]
     Active Substance: TECHNETIUM TC-99M PYROPHOSPHATE
     Indication: MULTIPLE GATED ACQUISITION SCAN
     Dosage: 3 ML, OD (1/2 VIAL)
     Route: 042
     Dates: start: 20160810, end: 20160810

REACTIONS (1)
  - Radioisotope scan abnormal [Unknown]

NARRATIVE: CASE EVENT DATE: 20160810
